FAERS Safety Report 24456526 (Version 2)
Quarter: 2024Q4

REPORT INFORMATION
  Report Type: Report from Study
  Country: US (occurrence: US)
  Receive Date: 20241017
  Receipt Date: 20241018
  Transmission Date: 20250114
  Serious: No
  Sender: ROCHE
  Company Number: US-ROCHE-3504902

PATIENT
  Age: 58 Year
  Sex: Female
  Weight: 85.7 kg

DRUGS (12)
  1. RITUXAN [Suspect]
     Active Substance: RITUXIMAB
     Indication: Interstitial lung disease
     Route: 042
  2. CELLCEPT [Suspect]
     Active Substance: MYCOPHENOLATE MOFETIL
     Indication: Product used for unknown indication
     Dosage: TAKE 3 TABLETS IN THE MORNING AND 3 TABLETS BEFORE BED TIMES BY MOUTH
     Route: 048
     Dates: start: 20230424, end: 20240122
  3. ALBUTEROL [Concomitant]
     Active Substance: ALBUTEROL
     Dosage: 90 MCG/PUFF?INHALE 2 PUFFS EVERY 6 HOURS AS NEEDED
  4. LIPITOR [Concomitant]
     Active Substance: ATORVASTATIN CALCIUM
     Dosage: 40 MG TABLET
  5. BENZONATATE [Concomitant]
     Active Substance: BENZONATATE
     Dosage: 100 MG CAPSULE?TAKE 2 CAPSULES 3 TIMES IN DAY
  6. FIORICET [Concomitant]
     Active Substance: ACETAMINOPHEN\BUTALBITAL\CAFFEINE
  7. ZYRTEC [Concomitant]
     Active Substance: CETIRIZINE HYDROCHLORIDE
     Dosage: 10 MG TABLET, ONE TABLET BY MOUTH FOR 15 DAYS.
  8. VITAMIN B12 [Concomitant]
     Active Substance: CYANOCOBALAMIN
     Dosage: INJECT 1 MILLILITER BY INTRAMUSCULAR ROUTE ONCE A MONTH FOR 30 DAYS
  9. PEPCID [Concomitant]
     Active Substance: FAMOTIDINE
     Dosage: 40 MG TABLET, TAKE 1 TABLET IN THE MORNING BY MOUTH
  10. FLONASE [Concomitant]
     Active Substance: FLUTICASONE PROPIONATE
     Dosage: 50 MCG, INSTILL 2 SPRAYS INTO EACH NOSTRIL
  11. MOTRIN [Concomitant]
     Active Substance: IBUPROFEN
     Dosage: 600 MG TABLET, EVERY 6 HOURS AS NEEDED BY MOUTH FOR UP TO 30 DAYS
  12. ATORVASTATIN [Concomitant]
     Active Substance: ATORVASTATIN
     Dosage: TAKE 1 TABLET BY MOUTH DAILY IN THE MORNING

REACTIONS (2)
  - Off label use [Unknown]
  - Vomiting [Unknown]
